FAERS Safety Report 22536315 (Version 1)
Quarter: 2023Q2

REPORT INFORMATION
  Report Type: Spontaneous
  Country: US (occurrence: US)
  Receive Date: 20230608
  Receipt Date: 20230608
  Transmission Date: 20230722
  Serious: No
  Sender: FDA-Public Use
  Company Number: US-BAUSCH-BL-2023-008615

PATIENT
  Sex: Female

DRUGS (2)
  1. ARAZLO [Suspect]
     Active Substance: TAZAROTENE
     Indication: Product used for unknown indication
     Route: 065
  2. AVEENO [Concomitant]
     Active Substance: DIMETHICONE\HOMOSALATE\OCTINOXATE\OCTISALATE\TITANIUM DIOXIDE
     Indication: Product used for unknown indication
     Route: 065

REACTIONS (1)
  - Application site inflammation [Unknown]
